FAERS Safety Report 9612757 (Version 2)
Quarter: 2013Q4

REPORT INFORMATION
  Report Type: Spontaneous
  Country: US (occurrence: None)
  Receive Date: 20131008
  Receipt Date: 20131024
  Transmission Date: 20140711
  Serious: Yes (Hospitalization)
  Sender: FDA-Public Use
  Company Number: 2013-US-001366

PATIENT
  Age: 56 Year
  Sex: Male

DRUGS (1)
  1. PRIALT [Suspect]
     Indication: PAIN
     Dosage: UNK, UG, QH, INTRATHECAL
     Route: 037
     Dates: end: 20130729

REACTIONS (4)
  - Respiratory arrest [None]
  - Foot operation [None]
  - Device issue [None]
  - Device alarm issue [None]
